FAERS Safety Report 10021697 (Version 1)
Quarter: 2014Q1

REPORT INFORMATION
  Report Type: Spontaneous
  Country: US (occurrence: None)
  Receive Date: 20140318
  Receipt Date: 20140318
  Transmission Date: 20141002
  Serious: Yes (Disabling, Other)
  Sender: FDA-Public Use
  Company Number: None

PATIENT
  Age: 52 Year
  Sex: Female
  Weight: 120.2 kg

DRUGS (1)
  1. FLONASE [Suspect]
     Indication: ASTHMA
     Dosage: 2 SPRAY, PER NOSTRIL ONCE DAILY NOSTRIL SPRAY

REACTIONS (2)
  - Cataract [None]
  - Blindness [None]
